FAERS Safety Report 12093262 (Version 3)
Quarter: 2016Q2

REPORT INFORMATION
  Report Type: Report from Study
  Country: CO (occurrence: CO)
  Receive Date: 20160219
  Receipt Date: 20160406
  Transmission Date: 20160815
  Serious: Yes (Death, Hospitalization, Other)
  Sender: FDA-Public Use
  Company Number: PHHY2016CO021787

PATIENT
  Age: 45 Year
  Sex: Female
  Weight: 52 kg

DRUGS (3)
  1. ENSURE [Concomitant]
     Active Substance: AMINO ACIDS\DEXTROSE\ELECTROLYTES NOS\SOYBEAN OIL\VITAMINS
     Indication: PRODUCT USED FOR UNKNOWN INDICATION
     Dosage: 1 DF, QD (1 GLASS DAILY)
  2. AFINITOR [Suspect]
     Active Substance: EVEROLIMUS
     Indication: BREAST CANCER
     Dosage: 10 MG, QD
     Route: 048
     Dates: start: 20131105, end: 20160210
  3. ALAP//ALPRAZOLAM [Concomitant]
     Indication: PRODUCT USED FOR UNKNOWN INDICATION
     Dosage: 50 MG, QD
     Route: 065

REACTIONS (14)
  - Localised intraabdominal fluid collection [Unknown]
  - Metastases to bone [Unknown]
  - Speech disorder [Unknown]
  - Infrequent bowel movements [Unknown]
  - Hepatic cirrhosis [Unknown]
  - Oral mucosal blistering [Unknown]
  - Anuria [Unknown]
  - Gastric disorder [Unknown]
  - Skin cancer [Unknown]
  - Second primary malignancy [Unknown]
  - Dry skin [Unknown]
  - Malignant neoplasm progression [Fatal]
  - Metastases to lung [Unknown]
  - Diet refusal [Unknown]

NARRATIVE: CASE EVENT DATE: 20131105
